FAERS Safety Report 20103520 (Version 1)
Quarter: 2021Q4

REPORT INFORMATION
  Report Type: Spontaneous
  Country: ES (occurrence: ES)
  Receive Date: 20211123
  Receipt Date: 20211123
  Transmission Date: 20220303
  Serious: Yes (Hospitalization, Other)
  Sender: FDA-Public Use
  Company Number: None

PATIENT
  Age: 32 Year
  Sex: Male

DRUGS (1)
  1. YESCARTA [Suspect]
     Active Substance: AXICABTAGENE CILOLEUCEL
     Indication: Product used for unknown indication
     Dosage: UNK
     Route: 042
     Dates: start: 20211006, end: 20211006

REACTIONS (4)
  - Generalised tonic-clonic seizure [Recovered/Resolved]
  - Neurotoxicity [Recovering/Resolving]
  - Cytokine release syndrome [Recovered/Resolved]
  - Aphasia [Recovering/Resolving]

NARRATIVE: CASE EVENT DATE: 20211010
